FAERS Safety Report 15266959 (Version 1)
Quarter: 2018Q3

REPORT INFORMATION
  Report Type: Spontaneous
  Country: US (occurrence: US)
  Receive Date: 20180724
  Receipt Date: 20180724
  Transmission Date: 20181010
  Serious: No
  Sender: FDA-Public Use
  Company Number: None

PATIENT
  Age: 79 Year
  Sex: Female
  Weight: 56.7 kg

DRUGS (5)
  1. DILTIAZEM. [Concomitant]
     Active Substance: DILTIAZEM
  2. ELIQUIS [Concomitant]
     Active Substance: APIXABAN
  3. COENZYME Q10 [Concomitant]
     Active Substance: UBIDECARENONE
  4. ROSUVASTATIN 20MG [Suspect]
     Active Substance: ROSUVASTATIN
     Indication: BLOOD CHOLESTEROL ABNORMAL
     Dosage: ?          QUANTITY:36 DF DOSAGE FORM;?
     Route: 048
     Dates: start: 20180706, end: 20180709
  5. VITAMIN D [Concomitant]
     Active Substance: CHOLECALCIFEROL

REACTIONS (4)
  - Multiple organ dysfunction syndrome [None]
  - Dyspnoea [None]
  - Fatigue [None]
  - Cerebrovascular accident [None]

NARRATIVE: CASE EVENT DATE: 20180706
